FAERS Safety Report 17654416 (Version 2)
Quarter: 2020Q2

REPORT INFORMATION
  Report Type: Spontaneous
  Country: FR (occurrence: FR)
  Receive Date: 20200410
  Receipt Date: 20200505
  Transmission Date: 20200713
  Serious: Yes (Death)
  Sender: FDA-Public Use
  Company Number: FR-ACCORD-178432

PATIENT
  Age: 52 Year
  Sex: Female
  Weight: 75 kg

DRUGS (3)
  1. FLUOROURACIL ACCORD [Suspect]
     Active Substance: FLUOROURACIL
     Indication: NEUROENDOCRINE TUMOUR
     Dosage: STRENGTH: 50 MG / ML
     Route: 041
     Dates: start: 20190909, end: 20191212
  2. FLUOROURACIL ACCORD [Suspect]
     Active Substance: FLUOROURACIL
     Indication: NEUROENDOCRINE TUMOUR
     Dosage: STRENGTH: 50 MG / ML
     Route: 042
     Dates: start: 20190909, end: 20191210
  3. DACARBAZINE MEDAC [Suspect]
     Active Substance: DACARBAZINE
     Indication: NEUROENDOCRINE TUMOUR
     Route: 042
     Dates: start: 20190909, end: 20191211

REACTIONS (1)
  - Nephrotic syndrome [Fatal]

NARRATIVE: CASE EVENT DATE: 20200219
